FAERS Safety Report 21322342 (Version 3)
Quarter: 2022Q4

REPORT INFORMATION
  Report Type: Spontaneous
  Country: US (occurrence: US)
  Receive Date: 20220912
  Receipt Date: 20221102
  Transmission Date: 20230113
  Serious: No
  Sender: FDA-Public Use
  Company Number: US-Vifor (International) Inc.-VIT-2022-06081

PATIENT
  Age: 61 Year
  Sex: Male

DRUGS (11)
  1. MIRCERA [Suspect]
     Active Substance: METHOXY POLYETHYLENE GLYCOL-EPOETIN BETA
     Indication: Anaemia
     Route: 042
     Dates: start: 2021, end: 20220830
  2. MIRCERA [Suspect]
     Active Substance: METHOXY POLYETHYLENE GLYCOL-EPOETIN BETA
     Indication: Chronic kidney disease
  3. EPOGEN [Concomitant]
     Active Substance: ERYTHROPOIETIN
     Indication: Anaemia
     Route: 042
     Dates: start: 202209
  4. EPOGEN [Concomitant]
     Active Substance: ERYTHROPOIETIN
     Indication: Chronic kidney disease
  5. DESFERAL [Concomitant]
     Active Substance: DEFEROXAMINE MESYLATE
  6. VITAMINS [Concomitant]
     Active Substance: VITAMINS
  7. PENTOXIFYLLINE [Concomitant]
     Active Substance: PENTOXIFYLLINE
  8. PREDNISONE [Concomitant]
     Active Substance: PREDNISONE
  9. SEVELAMER [Concomitant]
     Active Substance: SEVELAMER
  10. LINAGLIPTIN [Concomitant]
     Active Substance: LINAGLIPTIN
  11. VITAMIN D [Concomitant]
     Active Substance: VITAMIN D NOS

REACTIONS (5)
  - White blood cell count decreased [Unknown]
  - Reticulocyte count decreased [Unknown]
  - Haemoglobin decreased [Unknown]
  - Haematocrit decreased [Unknown]
  - Red blood cell count decreased [Unknown]

NARRATIVE: CASE EVENT DATE: 20211229
